FAERS Safety Report 9992475 (Version 5)
Quarter: 2014Q2

REPORT INFORMATION
  Report Type: Report from Study
  Country: AR (occurrence: AR)
  Receive Date: 20140310
  Receipt Date: 20140619
  Transmission Date: 20141212
  Serious: Yes (Hospitalization)
  Sender: FDA-Public Use
  Company Number: AR-GLAXOSMITHKLINE-Z0022245A

PATIENT
  Age: 24 Year
  Sex: Female
  Weight: 94.5 kg

DRUGS (2)
  1. DABRAFENIB [Suspect]
     Indication: MALIGNANT MELANOMA
     Dosage: 150MG TWICE PER DAY
     Route: 048
     Dates: start: 20140211, end: 20140227
  2. TRAMETINIB [Suspect]
     Indication: MALIGNANT MELANOMA
     Dosage: 2MG PER DAY
     Route: 048
     Dates: start: 20140211, end: 20140225

REACTIONS (1)
  - Chorioretinopathy [Recovered/Resolved]
